FAERS Safety Report 5452177-7 (Version None)
Quarter: 2007Q3

REPORT INFORMATION
  Report Type: 
  Country: None (occurrence: None)
  Receive Date: 20070912
  Receipt Date: 20070912
  Transmission Date: 20080115
  Serious: Yes (Other)
  Sender: FDA-Public Use
  Company Number: None

PATIENT
  Sex: Female
  Weight: 61.6892 kg

DRUGS (1)
  1. BUDEPRION 300MG XL, IMPAX LABORATORIES -800MG XR ONE PO Q AM PO [Suspect]
     Indication: DEPRESSION
     Dosage: 300 MG ONCE PO QAM PO
     Route: 048
     Dates: start: 20070501, end: 20070701

REACTIONS (2)
  - DEPRESSION [None]
  - THERAPEUTIC RESPONSE UNEXPECTED WITH DRUG SUBSTITUTION [None]
